FAERS Safety Report 6573773-X (Version None)
Quarter: 2010Q1

REPORT INFORMATION
  Report Type: 
  Country: None (occurrence: None)
  Receive Date: 20100208
  Receipt Date: 20100129
  Transmission Date: 20100710
  Serious: Yes (Other)
  Sender: FDA-Public Use
  Company Number: US-ABBOTT-10P-163-0623354-00

PATIENT
  Sex: Female
  Weight: 87.168 kg

DRUGS (3)
  1. HUMIRA [Suspect]
     Indication: PSORIASIS
     Route: 058
     Dates: start: 20090701, end: 20100104
  2. ZOLPIDEM [Concomitant]
     Indication: INSOMNIA
     Dosage: UNKNOWN
  3. LISINOPRIL [Concomitant]
     Indication: HYPERTENSION
     Dosage: UNKNOWN

REACTIONS (6)
  - BLOOD GLUCOSE INCREASED [None]
  - BLOOD PRESSURE INCREASED [None]
  - PRURITUS [None]
  - PSORIASIS [None]
  - VISION BLURRED [None]
  - VISUAL ACUITY REDUCED [None]
